FAERS Safety Report 17859414 (Version 1)
Quarter: 2020Q2

REPORT INFORMATION
  Report Type: Spontaneous
  Country: US (occurrence: US)
  Receive Date: 20200603
  Receipt Date: 20200603
  Transmission Date: 20200714
  Serious: Yes (Other)
  Sender: FDA-Public Use
  Company Number: None

PATIENT
  Age: 73 Year
  Sex: Female
  Weight: 81.14 kg

DRUGS (22)
  1. FLUOCINOLONE [Concomitant]
     Active Substance: FLUOCINOLONE
  2. FLOVENT [Concomitant]
     Active Substance: FLUTICASONE PROPIONATE
  3. OMEPRAZOLE. [Concomitant]
     Active Substance: OMEPRAZOLE
  4. ONDANSETRON [Concomitant]
     Active Substance: ONDANSETRON
  5. GABAPENTIN. [Concomitant]
     Active Substance: GABAPENTIN
  6. TURMERIC [Concomitant]
     Active Substance: HERBALS\TURMERIC
  7. LOSARTAN. [Concomitant]
     Active Substance: LOSARTAN
  8. CAPECITABINE. [Suspect]
     Active Substance: CAPECITABINE
     Indication: CARCINOID TUMOUR
     Route: 048
     Dates: start: 20200318
  9. VITAMIN D [Concomitant]
     Active Substance: VITAMIN D NOS
  10. LOMOTIL [Concomitant]
     Active Substance: ATROPINE SULFATE\DIPHENOXYLATE HYDROCHLORIDE
  11. VENLAFAXINE [Concomitant]
     Active Substance: VENLAFAXINE HYDROCHLORIDE
  12. ELIQUIS [Concomitant]
     Active Substance: APIXABAN
  13. FUROSEMIDE. [Concomitant]
     Active Substance: FUROSEMIDE
  14. MAGNESIUM OXIDE. [Concomitant]
     Active Substance: MAGNESIUM OXIDE
  15. ATENOLOL. [Concomitant]
     Active Substance: ATENOLOL
  16. ALBUTEROL. [Concomitant]
     Active Substance: ALBUTEROL
  17. ARIPIPRAZOLE. [Concomitant]
     Active Substance: ARIPIPRAZOLE
  18. LIPITOR [Concomitant]
     Active Substance: ATORVASTATIN CALCIUM
  19. DILTIAZEM. [Concomitant]
     Active Substance: DILTIAZEM
  20. METFORMIN [Concomitant]
     Active Substance: METFORMIN HYDROCHLORIDE
  21. MULTIVITAMINS [Concomitant]
     Active Substance: VITAMINS
  22. TEMOVATE [Concomitant]
     Active Substance: CLOBETASOL PROPIONATE

REACTIONS (2)
  - Palmar-plantar erythrodysaesthesia syndrome [None]
  - Fatigue [None]
